FAERS Safety Report 8728199 (Version 5)
Quarter: 2013Q2

REPORT INFORMATION
  Report Type: Report from Study
  Country: JP (occurrence: JP)
  Receive Date: 20120817
  Receipt Date: 20130619
  Transmission Date: 20140414
  Serious: Yes (Death)
  Sender: FDA-Public Use
  Company Number: JP-BRISTOL-MYERS SQUIBB COMPANY-16850257

PATIENT
  Age: 28 Year
  Sex: Male
  Weight: 66 kg

DRUGS (4)
  1. SPRYCEL [Suspect]
     Indication: CHRONIC MYELOID LEUKAEMIA
     Dosage: 7APR11-9JUN11,?INTERR 24AUG11?30JUN11-18AUG12
     Route: 048
     Dates: start: 20110407, end: 20110818
  2. SELBEX [Concomitant]
     Dosage: CAPS,50MGX3/DAY
     Route: 048
     Dates: start: 20110407, end: 20110818
  3. ROCEPHIN [Concomitant]
     Dosage: INJECTION
     Route: 041
     Dates: start: 20110811, end: 20110824
  4. VANCOMYCIN [Concomitant]
     Route: 041
     Dates: start: 20110812, end: 20110824

REACTIONS (4)
  - Blast cell crisis [Fatal]
  - Haemorrhage [Fatal]
  - Pulmonary oedema [Fatal]
  - Subdural haematoma [Fatal]
